FAERS Safety Report 10910813 (Version 1)
Quarter: 2015Q1

REPORT INFORMATION
  Report Type: Spontaneous
  Country: US (occurrence: US)
  Receive Date: 20150312
  Receipt Date: 20150312
  Transmission Date: 20150721
  Serious: Yes (Other)
  Sender: FDA-Public Use
  Company Number: US-ABBVIE-14P-163-1293245-00

PATIENT
  Sex: Male

DRUGS (4)
  1. LAMICTAL [Suspect]
     Active Substance: LAMOTRIGINE
     Indication: EPILEPSY
     Dosage: HIGH DOSES
     Route: 065
  2. DEPAKOTE [Suspect]
     Active Substance: DIVALPROEX SODIUM
     Indication: EPILEPSY
     Route: 065
  3. ZONEGRAN [Suspect]
     Active Substance: ZONISAMIDE
     Indication: EPILEPSY
     Dosage: HIGH DOSES
     Route: 065
  4. KLONOPIN [Suspect]
     Active Substance: CLONAZEPAM
     Indication: EPILEPSY
     Dosage: HIGH DOSES
     Route: 065

REACTIONS (9)
  - Lethargy [Unknown]
  - Generalised tonic-clonic seizure [Unknown]
  - Hypotonia [Unknown]
  - Hypophagia [Unknown]
  - Childhood disintegrative disorder [Unknown]
  - Anticonvulsant drug level increased [Unknown]
  - Weight increased [Unknown]
  - Hepatic failure [Unknown]
  - Abnormal behaviour [Unknown]
